FAERS Safety Report 10349417 (Version 1)
Quarter: 2014Q3

REPORT INFORMATION
  Report Type: Spontaneous
  Country: US (occurrence: None)
  Receive Date: 20140728
  Receipt Date: 20140728
  Transmission Date: 20150326
  Serious: Yes (Hospitalization)
  Sender: FDA-Public Use
  Company Number: None

PATIENT
  Age: 17 Year
  Sex: Female
  Weight: 82.5 kg

DRUGS (3)
  1. VINCRISTINE SULFATE. [Suspect]
     Active Substance: VINCRISTINE SULFATE
     Dates: start: 20140715
  2. DAUNORUBICIN [Suspect]
     Active Substance: DAUNORUBICIN
     Dates: start: 20140715
  3. PREDNISONE. [Suspect]
     Active Substance: PREDNISONE
     Dates: start: 20140721

REACTIONS (7)
  - Diaphragmatic disorder [None]
  - Flank pain [None]
  - Abdominal pain [None]
  - Pancytopenia [None]
  - Lobar pneumonia [None]
  - Ileus [None]
  - Colitis [None]

NARRATIVE: CASE EVENT DATE: 20140722
